FAERS Safety Report 12348302 (Version 7)
Quarter: 2018Q1

REPORT INFORMATION
  Report Type: Report from Study
  Country: US (occurrence: US)
  Receive Date: 20160509
  Receipt Date: 20180227
  Transmission Date: 20180508
  Serious: Yes (Other)
  Sender: FDA-Public Use
  Company Number: US-JNJFOC-20160506405

PATIENT
  Sex: Male

DRUGS (2)
  1. IMBRUVICA [Suspect]
     Active Substance: IBRUTINIB
     Indication: CHRONIC LYMPHOCYTIC LEUKAEMIA
     Route: 048
     Dates: start: 201603
  2. IMBRUVICA [Suspect]
     Active Substance: IBRUTINIB
     Indication: CHRONIC LYMPHOCYTIC LEUKAEMIA
     Route: 048
     Dates: start: 20160429

REACTIONS (12)
  - Eye haemorrhage [Recovered/Resolved]
  - Seasonal allergy [Unknown]
  - Contusion [Recovering/Resolving]
  - Haemorrhage subcutaneous [Unknown]
  - Ocular hyperaemia [Unknown]
  - Rash [Unknown]
  - Sunburn [Recovered/Resolved]
  - Somnolence [Unknown]
  - White blood cell count increased [Unknown]
  - Adverse drug reaction [Recovering/Resolving]
  - Fatigue [Not Recovered/Not Resolved]
  - Platelet count decreased [Recovering/Resolving]

NARRATIVE: CASE EVENT DATE: 2016
